FAERS Safety Report 7500732-2 (Version None)
Quarter: 2011Q2

REPORT INFORMATION
  Report Type: 
  Country: None (occurrence: None)
  Receive Date: 20110524
  Receipt Date: 20110517
  Transmission Date: 20111010
  Serious: Yes (Life-Threatening, Hospitalization, Other)
  Sender: FDA-Public Use
  Company Number: GXKR2011DE01374

PATIENT
  Age: 78 Year
  Sex: Male
  Weight: 95 kg

DRUGS (2)
  1. SIMVASTATIN [Suspect]
     Dosage: 80 MG, QD
     Route: 048
     Dates: start: 20101221, end: 20110103
  2. SIMVASTATIN [Suspect]
     Dosage: 40 MG, QD
     Route: 048
     Dates: start: 20101217, end: 20101220

REACTIONS (8)
  - BLOOD UREA INCREASED [None]
  - DEHYDRATION [None]
  - GASTROENTERITIS CLOSTRIDIAL [None]
  - BLOOD CREATININE INCREASED [None]
  - BLOOD URIC ACID INCREASED [None]
  - RENAL FAILURE ACUTE [None]
  - DIARRHOEA [None]
  - BLOOD CREATINE PHOSPHOKINASE INCREASED [None]
